FAERS Safety Report 9746765 (Version 3)
Quarter: 2014Q1

REPORT INFORMATION
  Report Type: Report from Study
  Country: BR (occurrence: BR)
  Receive Date: 20131211
  Receipt Date: 20140304
  Transmission Date: 20141002
  Serious: Yes (Other)
  Sender: FDA-Public Use
  Company Number: BR-ABBVIE-13P-020-1170352-00

PATIENT
  Age: 41 Year
  Sex: Female
  Weight: 56 kg

DRUGS (4)
  1. HUMIRA [Suspect]
     Indication: ANKYLOSING SPONDYLITIS
     Route: 058
     Dates: start: 20131028
  2. HUMIRA [Suspect]
     Route: 058
     Dates: start: 20131212
  3. RIVOTRIL [Concomitant]
     Indication: SLEEP DISORDER THERAPY
     Dosage: AT NIGHT
     Route: 048
     Dates: start: 2011
  4. DICLOFENAC [Concomitant]
     Indication: PAIN
     Route: 048
     Dates: start: 201304

REACTIONS (4)
  - Varicose vein [Recovering/Resolving]
  - Pain [Recovering/Resolving]
  - Burning sensation [Not Recovered/Not Resolved]
  - Post procedural haematoma [Unknown]
